FAERS Safety Report 23815436 (Version 2)
Quarter: 2024Q2

REPORT INFORMATION
  Report Type: Report from Study
  Country: DE (occurrence: DE)
  Receive Date: 20240503
  Receipt Date: 20240618
  Transmission Date: 20240716
  Serious: Yes (Death, Other)
  Sender: FDA-Public Use
  Company Number: DE-TAKEDA-2024TUS041613

PATIENT
  Sex: Male

DRUGS (1)
  1. FRUQUINTINIB [Suspect]
     Active Substance: FRUQUINTINIB
     Indication: Colorectal cancer
     Dosage: UNK
     Route: 065
     Dates: start: 202403, end: 202403

REACTIONS (3)
  - Metastases to liver [Fatal]
  - Coma hepatic [Fatal]
  - Hepatic failure [Fatal]
